FAERS Safety Report 5204580-8 (Version None)
Quarter: 2007Q1

REPORT INFORMATION
  Report Type: 
  Country: None (occurrence: None)
  Receive Date: 20070110
  Receipt Date: 20060515
  Transmission Date: 20070707
  Serious: No
  Sender: FDA-Public Use
  Company Number: US-BRISTOL-MYERS SQUIBB COMPANY-13377866

PATIENT
  Age: 25 Year
  Sex: Male
  Weight: 102 kg

DRUGS (4)
  1. ABILIFY [Suspect]
     Route: 048
     Dates: start: 20060301
  2. LITHIUM CARBONATE [Concomitant]
  3. LEXAPRO [Concomitant]
  4. KLONOPIN [Concomitant]

REACTIONS (6)
  - ANXIETY [None]
  - DISTURBANCE IN ATTENTION [None]
  - MEMORY IMPAIRMENT [None]
  - MYALGIA [None]
  - TREMOR [None]
  - VOMITING [None]
